FAERS Safety Report 16692413 (Version 1)
Quarter: 2019Q3

REPORT INFORMATION
  Report Type: Spontaneous
  Country: BY (occurrence: BY)
  Receive Date: 20190812
  Receipt Date: 20190812
  Transmission Date: 20191004
  Serious: Yes (Death, Hospitalization, Other)
  Sender: FDA-Public Use
  Company Number: PHHY2019BY185416

PATIENT
  Sex: Male
  Weight: 55 kg

DRUGS (13)
  1. BEDAQUILINE [Suspect]
     Active Substance: BEDAQUILINE
     Indication: TUBERCULOSIS
     Dosage: 200 OT, QD
     Route: 048
     Dates: start: 20171010
  2. LINEZOLID. [Suspect]
     Active Substance: LINEZOLID
     Indication: TUBERCULOSIS
     Dosage: UNK UNK, QD (600/300)
     Route: 048
     Dates: start: 20171010
  3. GLUCOSE [Concomitant]
     Active Substance: DEXTROSE
     Indication: PRODUCT USED FOR UNKNOWN INDICATION
     Dosage: UNK
     Route: 065
     Dates: start: 20180913
  4. CLOFAZIMINE [Suspect]
     Active Substance: CLOFAZIMINE
     Indication: TUBERCULOSIS
     Dosage: 100 OT, QD
     Route: 048
     Dates: start: 20171010
  5. ZOPICLON [Concomitant]
     Active Substance: ZOPICLONE
     Indication: PRODUCT USED FOR UNKNOWN INDICATION
     Dosage: UNK
     Route: 065
     Dates: start: 20180914
  6. AMITRIPTYLINE [Concomitant]
     Active Substance: AMITRIPTYLINE
     Indication: PRODUCT USED FOR UNKNOWN INDICATION
     Dosage: UNK
     Route: 065
     Dates: start: 20180903, end: 20180914
  7. LOPERAMIDE [Concomitant]
     Active Substance: LOPERAMIDE
     Indication: PRODUCT USED FOR UNKNOWN INDICATION
     Dosage: UNK
     Route: 065
     Dates: start: 20180917, end: 20180921
  8. INSULIN [Concomitant]
     Active Substance: INSULIN NOS
     Indication: PRODUCT USED FOR UNKNOWN INDICATION
     Dosage: UNK
     Route: 065
  9. PYRIDOXINE [Concomitant]
     Active Substance: PYRIDOXINE
     Indication: PRODUCT USED FOR UNKNOWN INDICATION
     Dosage: UNK
     Route: 065
     Dates: start: 20171024
  10. FLUOXETIN [Concomitant]
     Active Substance: FLUOXETINE HYDROCHLORIDE
     Indication: PRODUCT USED FOR UNKNOWN INDICATION
     Dosage: UNK
     Route: 065
     Dates: start: 20180912
  11. DELAMANID [Suspect]
     Active Substance: DELAMANID
     Indication: TUBERCULOSIS
     Dosage: 200 OT, QD
     Route: 048
     Dates: start: 20180509
  12. ETHIONAMIDE [Suspect]
     Active Substance: ETHIONAMIDE
     Indication: TUBERCULOSIS
     Dosage: 750 OT, QD
     Route: 048
     Dates: start: 20180331, end: 20180509
  13. FAMOTIDINE. [Concomitant]
     Active Substance: FAMOTIDINE
     Indication: PRODUCT USED FOR UNKNOWN INDICATION
     Dosage: UNK
     Route: 065
     Dates: start: 20180711

REACTIONS (41)
  - Asthenia [Unknown]
  - Tricuspid valve incompetence [Unknown]
  - Pulmonary oedema [Unknown]
  - Hyperaemia [Unknown]
  - Atrioventricular block [Unknown]
  - Liver disorder [Unknown]
  - Cachexia [Fatal]
  - Cardiac failure [Fatal]
  - Haemothorax [Unknown]
  - Respiratory failure [Unknown]
  - Cardiomyopathy [Unknown]
  - Coronary artery disease [Unknown]
  - Muscular weakness [Unknown]
  - Nephrotic syndrome [Unknown]
  - Liver induration [Unknown]
  - Cardiac hypertrophy [Unknown]
  - Peripheral arterial occlusive disease [Unknown]
  - Arteriosclerosis coronary artery [Unknown]
  - Movement disorder [Unknown]
  - Renal necrosis [Unknown]
  - Arteriosclerosis [Unknown]
  - Brain oedema [Unknown]
  - Vascular encephalopathy [Unknown]
  - Ulcer [Unknown]
  - Hypertension [Unknown]
  - Abscess [Unknown]
  - Vestibular disorder [Unknown]
  - Multiple organ dysfunction syndrome [Fatal]
  - Coronary artery insufficiency [Fatal]
  - Lung abscess [Unknown]
  - Toxic neuropathy [Unknown]
  - Mitral valve incompetence [Unknown]
  - Pneumonia [Fatal]
  - Dyspnoea [Unknown]
  - Decreased appetite [Unknown]
  - Dizziness [Unknown]
  - Osteochondrosis [Unknown]
  - Congestive cardiomyopathy [Unknown]
  - Myocardial fibrosis [Unknown]
  - Headache [Unknown]
  - Pulmonary tuberculosis [Unknown]
